FAERS Safety Report 15645017 (Version 6)
Quarter: 2019Q1

REPORT INFORMATION
  Report Type: Report from Study
  Country: US (occurrence: US)
  Receive Date: 20181121
  Receipt Date: 20190117
  Transmission Date: 20190417
  Serious: Yes (Hospitalization)
  Sender: FDA-Public Use
  Company Number: US-TESAROUBC-2018-TSO1689-US

PATIENT
  Age: 77 Year
  Sex: Female
  Weight: 69.25 kg

DRUGS (5)
  1. TSR-042 [Suspect]
     Active Substance: DOSTARLIMAB
     Dosage: UNK
  2. ONDANSETRON [Concomitant]
     Active Substance: ONDANSETRON
     Indication: NAUSEA
     Dosage: UNK MG, TID
     Route: 048
     Dates: start: 20181106
  3. TSR-042 [Suspect]
     Active Substance: DOSTARLIMAB
     Indication: NON-SMALL CELL LUNG CANCER
     Dosage: 500 MG, UNK
     Route: 048
     Dates: start: 20181029, end: 20181029
  4. MORPHINE SULFATE. [Concomitant]
     Active Substance: MORPHINE SULFATE
     Indication: CANCER PAIN
     Dosage: UNK MG, UNK
     Route: 048
     Dates: start: 20181110
  5. NIRAPARIB [Suspect]
     Active Substance: NIRAPARIB
     Indication: NON-SMALL CELL LUNG CANCER
     Dosage: 200 MG, UNK
     Route: 048
     Dates: start: 20181029, end: 20181101

REACTIONS (1)
  - Constipation [Recovered/Resolved]

NARRATIVE: CASE EVENT DATE: 20181110
